FAERS Safety Report 25766194 (Version 1)
Quarter: 2025Q3

REPORT INFORMATION
  Report Type: Spontaneous
  Country: US (occurrence: US)
  Receive Date: 20250905
  Receipt Date: 20250905
  Transmission Date: 20251021
  Serious: No
  Sender: UNITED THERAPEUTICS
  Company Number: US-UNITED THERAPEUTICS-UNT-2025-029960

PATIENT
  Age: 81 Year
  Sex: Female

DRUGS (1)
  1. TYVASO [Suspect]
     Active Substance: TREPROSTINIL
     Indication: Pulmonary arterial hypertension

REACTIONS (3)
  - Device use error [Recovered/Resolved]
  - Device issue [Recovered/Resolved]
  - Device operational issue [Recovered/Resolved]

NARRATIVE: CASE EVENT DATE: 20250827
